FAERS Safety Report 16331596 (Version 3)
Quarter: 2020Q1

REPORT INFORMATION
  Report Type: Spontaneous
  Country: JP (occurrence: JP)
  Receive Date: 20190520
  Receipt Date: 20200108
  Transmission Date: 20200409
  Serious: Yes (Hospitalization, Other)
  Sender: FDA-Public Use
  Company Number: JP-PFIZER INC-2019212871

PATIENT
  Age: 87 Year
  Sex: Male
  Weight: 58.2 kg

DRUGS (7)
  1. MEROPEN [Suspect]
     Active Substance: MEROPENEM
     Indication: PNEUMONIA BACTERIAL
     Dosage: 1 G, 3X/DAY
     Route: 041
     Dates: start: 20190510, end: 20190523
  2. TAZOPIPE [Concomitant]
     Active Substance: PIPERACILLIN SODIUM\TAZOBACTAM SODIUM
     Dosage: 4.5 G, 3X/DAY
     Dates: start: 20190501, end: 20190509
  3. AMBISOME [Suspect]
     Active Substance: AMPHOTERICIN B
     Indication: FUNGAL INFECTION
     Dosage: 137.5 MG, 1X/DAY
     Route: 041
     Dates: start: 20190510, end: 20190514
  4. HEPARIN CALCIUM [Concomitant]
     Active Substance: HEPARIN CALCIUM
     Dosage: 5000 IU, 2X/DAY
     Dates: start: 20190515
  5. SULBACILLIN [Concomitant]
     Active Substance: AMPICILLIN SODIUM\SULBACTAM SODIUM
     Dosage: 3 G, 2X/DAY
     Dates: start: 20190425, end: 20190430
  6. PYDOXAL [Concomitant]
     Active Substance: PYRIDOXAL
     Dosage: UNK
     Dates: start: 20190227, end: 20190523
  7. FUNGUARD [Concomitant]
     Active Substance: MICAFUNGIN SODIUM
     Dosage: 150 MG, 1X/DAY
     Dates: start: 20190425, end: 20190430

REACTIONS (1)
  - Cerebral infarction [Unknown]

NARRATIVE: CASE EVENT DATE: 20190515
